FAERS Safety Report 9336433 (Version 2)
Quarter: 2013Q2

REPORT INFORMATION
  Report Type: Spontaneous
  Country: US (occurrence: US)
  Receive Date: 20130607
  Receipt Date: 20130625
  Transmission Date: 20140414
  Serious: No
  Sender: FDA-Public Use
  Company Number: US-009507513-1305USA016299

PATIENT
  Sex: 0

DRUGS (1)
  1. RIZATRIPTAN BENZOATE [Suspect]
     Route: 048

REACTIONS (1)
  - Drug ineffective [Unknown]
